FAERS Safety Report 5373919-5 (Version None)
Quarter: 2007Q2

REPORT INFORMATION
  Report Type: 
  Country: None (occurrence: None)
  Receive Date: 20070628
  Receipt Date: 20070621
  Transmission Date: 20071010
  Serious: Yes (Hospitalization)
  Sender: FDA-Public Use
  Company Number: AU-BOEHRINGER INGELHEIM PHARMACEUTICALS, INC.-2007-BP-12582AU

PATIENT
  Sex: Female

DRUGS (7)
  1. ASASANTIN SR (CAPSULE, LONG ACTING) [Suspect]
     Indication: TRANSIENT ISCHAEMIC ATTACK
     Dosage: 200/25 MG
     Route: 048
     Dates: start: 20070614
  2. ASPIRIN [Concomitant]
     Route: 048
  3. ACTONEL [Concomitant]
     Route: 048
  4. CALTRATE PLUS [Concomitant]
     Route: 048
  5. TRITACE [Concomitant]
     Route: 048
  6. ZOLOFT [Concomitant]
     Route: 048
  7. FELODIPINE [Concomitant]
     Route: 048

REACTIONS (2)
  - ABDOMINAL DISCOMFORT [None]
  - VOMITING [None]
